FAERS Safety Report 6017943-8 (Version None)
Quarter: 2008Q4

REPORT INFORMATION
  Report Type: 
  Country: None (occurrence: None)
  Receive Date: 20081223
  Receipt Date: 20081212
  Transmission Date: 20090506
  Serious: Yes (Hospitalization)
  Sender: FDA-Public Use
  Company Number: FR-JNJFOC-20081205770

PATIENT
  Sex: Male

DRUGS (10)
  1. TOPALGIC [Suspect]
     Indication: POLYARTHRITIS
     Route: 048
  2. LASILIX [Suspect]
     Indication: HYPERTENSION
     Route: 048
  3. COLCHICINE [Suspect]
     Route: 048
  4. COLCHICINE [Suspect]
     Route: 048
  5. COLCHICINE [Suspect]
     Indication: ARTHRALGIA
     Route: 048
  6. SKENAN [Concomitant]
  7. MORPHINE [Concomitant]
  8. ATACAND [Concomitant]
  9. CARDENSIEL [Concomitant]
  10. ALDACTONE [Concomitant]

REACTIONS (2)
  - CYTOLYTIC HEPATITIS [None]
  - DEEP VEIN THROMBOSIS [None]
